FAERS Safety Report 8905074 (Version 1)
Quarter: 2012Q4

REPORT INFORMATION
  Report Type: 
  Country: US (occurrence: US)
  Receive Date: 20121113
  Receipt Date: 20121113
  Transmission Date: 20130627
  Serious: No
  Sender: FDA-Public Use
  Company Number: US-BIOGENIDEC-2012BI050744

PATIENT
  Age: 57 Year
  Sex: Female

DRUGS (1)
  1. AVONEX [Suspect]
     Indication: MULTIPLE SCLEROSIS
     Route: 030
     Dates: start: 20010114

REACTIONS (3)
  - Gait disturbance [Not Recovered/Not Resolved]
  - Dysphonia [Not Recovered/Not Resolved]
  - Paraesthesia [Not Recovered/Not Resolved]
